FAERS Safety Report 9432532 (Version 1)
Quarter: 2013Q3

REPORT INFORMATION
  Report Type: Spontaneous
  Country: JP (occurrence: JP)
  Receive Date: 20130731
  Receipt Date: 20130731
  Transmission Date: 20140515
  Serious: Yes (Hospitalization)
  Sender: FDA-Public Use
  Company Number: PHHY2013JP067188

PATIENT
  Age: 88 Year
  Sex: Female
  Weight: 37 kg

DRUGS (5)
  1. EXELON PATCH [Suspect]
     Indication: DEMENTIA ALZHEIMER^S TYPE
     Dosage: 4.5 MG, DAILY
     Route: 062
     Dates: start: 20130329, end: 20130418
  2. EXELON PATCH [Suspect]
     Dosage: 9 MG, DAILY
     Route: 062
     Dates: start: 20130419, end: 20130516
  3. EXELON PATCH [Suspect]
     Dosage: 13.5 MG, DAILY
     Route: 062
     Dates: start: 20130517, end: 20130620
  4. EXELON PATCH [Suspect]
     Dosage: 18 MG, DAILY
     Route: 062
     Dates: start: 20130621, end: 20130625
  5. AZILVA [Concomitant]
     Dosage: 20 MG, DAILY

REACTIONS (8)
  - Hypertension [Recovering/Resolving]
  - Bradycardia [Recovering/Resolving]
  - Concomitant disease aggravated [Recovering/Resolving]
  - Fatigue [Recovering/Resolving]
  - Hypertensive heart disease [Unknown]
  - Left ventricular hypertrophy [Unknown]
  - Feeling abnormal [Unknown]
  - Vomiting [Recovering/Resolving]
